FAERS Safety Report 15471103 (Version 4)
Quarter: 2025Q3

REPORT INFORMATION
  Report Type: Spontaneous
  Country: EU (occurrence: EU)
  Receive Date: 20181006
  Receipt Date: 20250901
  Transmission Date: 20251021
  Serious: Yes (Hospitalization, Other)
  Sender: AUROBINDO
  Company Number: EU-AUROBINDO-AUR-APL-2018-048251

PATIENT
  Age: 17 Year
  Sex: Male

DRUGS (12)
  1. SILDENAFIL [Suspect]
     Active Substance: SILDENAFIL
     Indication: Pulmonary hypertension
     Route: 065
  2. SILDENAFIL [Suspect]
     Active Substance: SILDENAFIL
     Indication: Product used for unknown indication
  3. AMBRISENTAN [Suspect]
     Active Substance: AMBRISENTAN
     Indication: Product used for unknown indication
     Route: 065
  4. VENTAVIS [Suspect]
     Active Substance: ILOPROST
     Indication: Pulmonary hypertension
     Route: 065
  5. VENTAVIS [Suspect]
     Active Substance: ILOPROST
     Indication: Product used for unknown indication
  6. ILOPROST [Suspect]
     Active Substance: ILOPROST
     Indication: Pulmonary hypertension
     Route: 065
  7. RUXOLITINIB [Concomitant]
     Active Substance: RUXOLITINIB
     Indication: Product used for unknown indication
     Route: 065
  8. RUXOLITINIB [Concomitant]
     Active Substance: RUXOLITINIB
     Indication: Autoinflammatory disease
     Dosage: 7.5 MG, BID (MAINTAINED)
     Route: 065
  9. RUXOLITINIB [Concomitant]
     Active Substance: RUXOLITINIB
     Dosage: 20 MILLIGRAM, ONCE A DAY,10 MG, BID
     Route: 065
  10. ABATACEPT [Concomitant]
     Active Substance: ABATACEPT
     Indication: Autoinflammatory disease
     Route: 065
  11. HYDROXYCHLOROQUINE [Concomitant]
     Active Substance: HYDROXYCHLOROQUINE
     Indication: Autoinflammatory disease
     Route: 065
  12. QUINACRINE [Concomitant]
     Active Substance: QUINACRINE
     Indication: Autoinflammatory disease
     Route: 065

REACTIONS (3)
  - Pancytopenia [Unknown]
  - Product administered to patient of inappropriate age [Unknown]
  - Off label use [Unknown]
